FAERS Safety Report 5131031-4 (Version None)
Quarter: 2006Q4

REPORT INFORMATION
  Report Type: 
  Country: None (occurrence: None)
  Receive Date: 20061019
  Receipt Date: 20061013
  Transmission Date: 20070319
  Serious: Yes (Other)
  Sender: FDA-Public Use
  Company Number: US-ROXANE LABORATORIES, INC-2006-BP-12020RO

PATIENT
  Age: 61 Year
  Sex: Female

DRUGS (4)
  1. CYCLOPHOSPHAMIDE [Suspect]
  2. FLUDARABINE [Suspect]
  3. CYCLOSPORINE [Suspect]
  4. PREDNISONE TAB [Suspect]

REACTIONS (2)
  - BASAL CELL CARCINOMA [None]
  - GRAFT VERSUS HOST DISEASE [None]
